FAERS Safety Report 14718043 (Version 5)
Quarter: 2022Q3

REPORT INFORMATION
  Report Type: Spontaneous
  Country: US (occurrence: US)
  Receive Date: 20180404
  Receipt Date: 20220714
  Transmission Date: 20221027
  Serious: No
  Sender: FDA-Public Use
  Company Number: US-SA-2018SA064856

PATIENT
  Age: 38 Year
  Sex: Male

DRUGS (17)
  1. DUPIXENT [Suspect]
     Active Substance: DUPILUMAB
     Indication: Dermatitis atopic
     Dosage: 300 MG, UNK
     Route: 058
     Dates: start: 20170831, end: 2017
  2. DUPIXENT [Suspect]
     Active Substance: DUPILUMAB
     Indication: Illness
     Dosage: 300 MG, QOW
     Route: 058
     Dates: start: 20171027
  3. DUPIXENT [Suspect]
     Active Substance: DUPILUMAB
     Indication: Dermatitis atopic
     Dosage: 300 MG, Q3W
     Route: 058
     Dates: start: 201803
  4. DOXEPIN HYDROCHLORIDE [Concomitant]
     Active Substance: DOXEPIN HYDROCHLORIDE
  5. AMOXICILLIN [Concomitant]
     Active Substance: AMOXICILLIN
  6. EUCRISA [Concomitant]
     Active Substance: CRISABOROLE
     Dosage: UNK UNK,UNK
     Route: 065
  7. PREVIDENT [Concomitant]
     Active Substance: SODIUM FLUORIDE
  8. PANTOPRAZOLE [Concomitant]
     Active Substance: PANTOPRAZOLE
  9. IBUPROFEN [Concomitant]
     Active Substance: IBUPROFEN
  10. CROMOLYN [Concomitant]
     Active Substance: CROMOLYN
  11. PFIZER-BIONTECH COVID-19 VACCINE [Concomitant]
     Active Substance: TOZINAMERAN
  12. ZYRTEC [Concomitant]
     Active Substance: CETIRIZINE HYDROCHLORIDE
  13. ZYRTEC [Concomitant]
     Active Substance: CETIRIZINE HYDROCHLORIDE
  14. CROMOLYN SODIUM [Concomitant]
     Active Substance: CROMOLYN SODIUM
  15. CROMOLYN SODIUM [Concomitant]
     Active Substance: CROMOLYN SODIUM
  16. PANTOPRAZOLE SODIUM [Concomitant]
     Active Substance: PANTOPRAZOLE SODIUM
  17. FEXOFENADINE [Concomitant]
     Active Substance: FEXOFENADINE HYDROCHLORIDE
     Dosage: 180 MG

REACTIONS (7)
  - Eye discharge [Not Recovered/Not Resolved]
  - Product dose omission issue [Recovered/Resolved]
  - Dermatitis atopic [Unknown]
  - Product dose omission issue [Recovered/Resolved]
  - Off label use [Unknown]
  - Product use in unapproved indication [Unknown]
  - Product packaging issue [Unknown]

NARRATIVE: CASE EVENT DATE: 20190701
